FAERS Safety Report 21811020 (Version 2)
Quarter: 2023Q1

REPORT INFORMATION
  Report Type: Spontaneous
  Country: CA (occurrence: CA)
  Receive Date: 20230103
  Receipt Date: 20230113
  Transmission Date: 20230417
  Serious: Yes (Other)
  Sender: FDA-Public Use
  Company Number: CA-MLMSERVICE-20221222-4000247-1

PATIENT
  Age: 70 Year
  Sex: Male

DRUGS (19)
  1. OXALIPLATIN [Suspect]
     Active Substance: OXALIPLATIN
     Indication: Panniculitis
     Dosage: FREQ:11 {CYCLICAL};65 MG/M^2 EVERY 2-WK (MFFX), WITH AN ADDITIONAL 20% DOSE REDUCTION
  2. OXALIPLATIN [Suspect]
     Active Substance: OXALIPLATIN
     Indication: Acinar cell carcinoma of pancreas
  3. OXALIPLATIN [Suspect]
     Active Substance: OXALIPLATIN
     Indication: Metastases to liver
  4. IRINOTECAN HYDROCHLORIDE [Suspect]
     Active Substance: IRINOTECAN HYDROCHLORIDE
     Indication: Panniculitis
     Dosage: FREQ:11 {CYCLICAL};120 MG/M^2 EVERY 2-WK (MFFX), WITH AN ADDITIONAL 20% DOSE REDUCTION
  5. IRINOTECAN HYDROCHLORIDE [Suspect]
     Active Substance: IRINOTECAN HYDROCHLORIDE
     Indication: Acinar cell carcinoma of pancreas
  6. IRINOTECAN HYDROCHLORIDE [Suspect]
     Active Substance: IRINOTECAN HYDROCHLORIDE
     Indication: Metastases to liver
  7. LEUCOVORIN CALCIUM [Suspect]
     Active Substance: LEUCOVORIN CALCIUM
     Indication: Panniculitis
     Dosage: FREQ:11 {CYCLICAL};400 MG/M^2 EVERY 2-WK (MFFX)
  8. LEUCOVORIN CALCIUM [Suspect]
     Active Substance: LEUCOVORIN CALCIUM
     Indication: Metastases to liver
  9. LEUCOVORIN CALCIUM [Suspect]
     Active Substance: LEUCOVORIN CALCIUM
     Indication: Acinar cell carcinoma of pancreas
  10. FLUOROURACIL [Suspect]
     Active Substance: FLUOROURACIL
     Indication: Acinar cell carcinoma of pancreas
     Dosage: FREQ:11 {CYCLICAL};4200 MG/M^2 EVERY 2-WK (MFFX)
  11. FLUOROURACIL [Suspect]
     Active Substance: FLUOROURACIL
     Indication: Metastases to liver
  12. FLUOROURACIL [Suspect]
     Active Substance: FLUOROURACIL
     Indication: Panniculitis
  13. NAPROXEN [Concomitant]
     Active Substance: NAPROXEN
     Indication: Gout
     Dosage: UNK
  14. NAPROXEN [Concomitant]
     Active Substance: NAPROXEN
     Indication: Seronegative arthritis
  15. NAPROXEN [Concomitant]
     Active Substance: NAPROXEN
     Indication: Arthritis
  16. PREDNISOLONE [Concomitant]
     Active Substance: PREDNISOLONE
     Indication: Arthritis
     Dosage: TAPERING DOSE
  17. PREDNISOLONE [Concomitant]
     Active Substance: PREDNISOLONE
     Indication: Gout
     Dosage: 15 MG
  18. PREDNISOLONE [Concomitant]
     Active Substance: PREDNISOLONE
     Indication: Seronegative arthritis
     Dosage: UNK
     Dates: start: 2021
  19. DEXAMETHASONE [Concomitant]
     Active Substance: DEXAMETHASONE
     Dosage: UNK

REACTIONS (2)
  - Peripheral sensory neuropathy [Unknown]
  - Neurotoxicity [Unknown]
